FAERS Safety Report 8080666-8 (Version None)
Quarter: 2012Q1

REPORT INFORMATION
  Report Type: 
  Country: None (occurrence: None)
  Receive Date: 20120130
  Receipt Date: 20120121
  Transmission Date: 20120608
  Serious: Yes (Other)
  Sender: FDA-Public Use
  Company Number: PHHY2012FR006150

PATIENT
  Age: 68 Year
  Sex: Male

DRUGS (13)
  1. FORADIL [Suspect]
     Indication: PULMONARY FIBROSIS
  2. PLAVIX [Concomitant]
  3. CRESTOR [Concomitant]
  4. OMACOR [Concomitant]
  5. PRAXILENE [Concomitant]
  6. PROCORALAN [Concomitant]
  7. FORADIL [Suspect]
     Indication: CHRONIC OBSTRUCTIVE PULMONARY DISEASE
  8. EFFEXOR [Concomitant]
     Dosage: UNK
  9. FERROUS SULFATE TAB [Concomitant]
  10. OMEPRAZOLE [Concomitant]
  11. ACARBOSE [Concomitant]
     Dosage: UNK
  12. LEXOMIL [Concomitant]
  13. ASPIRIN [Concomitant]

REACTIONS (7)
  - BLOOD PRESSURE INCREASED [None]
  - DIZZINESS [None]
  - TACHYCARDIA [None]
  - JOINT SWELLING [None]
  - NEUROPATHY PERIPHERAL [None]
  - ELECTROCARDIOGRAM QT PROLONGED [None]
  - INSOMNIA [None]
